FAERS Safety Report 12312336 (Version 1)
Quarter: 2016Q2

REPORT INFORMATION
  Report Type: Spontaneous
  Country: US (occurrence: US)
  Receive Date: 20160428
  Receipt Date: 20160428
  Transmission Date: 20160815
  Serious: No
  Sender: FDA-Public Use
  Company Number: US-ASTRAZENECA-2016SE45854

PATIENT
  Age: 22372 Day
  Sex: Male
  Weight: 95.3 kg

DRUGS (3)
  1. ASPIRIN. [Concomitant]
     Active Substance: ASPIRIN
     Route: 048
     Dates: start: 20151101
  2. AMOXICILLIN. [Concomitant]
     Active Substance: AMOXICILLIN
  3. BRILINTA [Suspect]
     Active Substance: TICAGRELOR
     Indication: STENT PLACEMENT
     Route: 048
     Dates: start: 20151101

REACTIONS (4)
  - Tinnitus [Unknown]
  - Ear infection [Unknown]
  - Ear discomfort [Unknown]
  - Ear disorder [Unknown]
